FAERS Safety Report 6142477-X (Version None)
Quarter: 2009Q2

REPORT INFORMATION
  Report Type: 
  Country: None (occurrence: None)
  Receive Date: 20090401
  Receipt Date: 20090401
  Transmission Date: 20091009
  Serious: Yes (Hospitalization)
  Sender: FDA-Public Use
  Company Number: None

PATIENT
  Age: 88 Year
  Sex: Female
  Weight: 64.4108 kg

DRUGS (1)
  1. VENOFER [Suspect]
     Indication: ANAEMIA
     Dosage: 500 MG IV X 1
     Route: 042
     Dates: start: 20090216

REACTIONS (4)
  - ASTHENIA [None]
  - NAUSEA [None]
  - PALLOR [None]
  - RASH [None]
